FAERS Safety Report 25482886 (Version 1)
Quarter: 2025Q2

REPORT INFORMATION
  Report Type: Spontaneous
  Country: GB (occurrence: GB)
  Receive Date: 20250626
  Receipt Date: 20250626
  Transmission Date: 20250717
  Serious: Yes (Other)
  Sender: MYLAN
  Company Number: GB-MYLANLABS-2025M1053333

PATIENT
  Age: 75 Year
  Sex: Male

DRUGS (32)
  1. METHOTREXATE [Suspect]
     Active Substance: METHOTREXATE
     Indication: Rheumatoid arthritis
  2. METHOTREXATE [Suspect]
     Active Substance: METHOTREXATE
     Route: 065
  3. METHOTREXATE [Suspect]
     Active Substance: METHOTREXATE
     Route: 065
  4. METHOTREXATE [Suspect]
     Active Substance: METHOTREXATE
  5. RIFAMPIN [Interacting]
     Active Substance: RIFAMPIN
     Indication: Disseminated tuberculosis
  6. RIFAMPIN [Interacting]
     Active Substance: RIFAMPIN
     Route: 065
  7. RIFAMPIN [Interacting]
     Active Substance: RIFAMPIN
     Route: 065
  8. RIFAMPIN [Interacting]
     Active Substance: RIFAMPIN
  9. SULFASALAZINE [Suspect]
     Active Substance: SULFASALAZINE
     Indication: Rheumatoid arthritis
  10. SULFASALAZINE [Suspect]
     Active Substance: SULFASALAZINE
     Route: 065
  11. SULFASALAZINE [Suspect]
     Active Substance: SULFASALAZINE
     Route: 065
  12. SULFASALAZINE [Suspect]
     Active Substance: SULFASALAZINE
  13. PREDNISOLONE [Interacting]
     Active Substance: PREDNISOLONE
     Indication: Rheumatoid arthritis
  14. PREDNISOLONE [Interacting]
     Active Substance: PREDNISOLONE
  15. PREDNISOLONE [Interacting]
     Active Substance: PREDNISOLONE
     Route: 048
  16. PREDNISOLONE [Interacting]
     Active Substance: PREDNISOLONE
     Route: 048
  17. PREDNISOLONE [Interacting]
     Active Substance: PREDNISOLONE
  18. PREDNISOLONE [Interacting]
     Active Substance: PREDNISOLONE
  19. PREDNISOLONE [Interacting]
     Active Substance: PREDNISOLONE
     Route: 048
  20. PREDNISOLONE [Interacting]
     Active Substance: PREDNISOLONE
     Route: 048
  21. ADALIMUMAB [Suspect]
     Active Substance: ADALIMUMAB
     Indication: Rheumatoid arthritis
  22. ADALIMUMAB [Suspect]
     Active Substance: ADALIMUMAB
     Route: 065
  23. ADALIMUMAB [Suspect]
     Active Substance: ADALIMUMAB
     Route: 065
  24. ADALIMUMAB [Suspect]
     Active Substance: ADALIMUMAB
  25. HYDROXYCHLOROQUINE [Suspect]
     Active Substance: HYDROXYCHLOROQUINE
     Indication: Rheumatoid arthritis
  26. HYDROXYCHLOROQUINE [Suspect]
     Active Substance: HYDROXYCHLOROQUINE
     Route: 065
  27. HYDROXYCHLOROQUINE [Suspect]
     Active Substance: HYDROXYCHLOROQUINE
     Route: 065
  28. HYDROXYCHLOROQUINE [Suspect]
     Active Substance: HYDROXYCHLOROQUINE
  29. LEVOFLOXACIN [Concomitant]
     Active Substance: LEVOFLOXACIN
     Indication: Lower respiratory tract infection
  30. LEVOFLOXACIN [Concomitant]
     Active Substance: LEVOFLOXACIN
     Route: 065
  31. LEVOFLOXACIN [Concomitant]
     Active Substance: LEVOFLOXACIN
     Route: 065
  32. LEVOFLOXACIN [Concomitant]
     Active Substance: LEVOFLOXACIN

REACTIONS (6)
  - Diverticulum [Unknown]
  - Disseminated tuberculosis [Unknown]
  - Cutaneous vasculitis [Recovered/Resolved]
  - Rash [Recovered/Resolved]
  - Drug interaction [Unknown]
  - Drug intolerance [Unknown]
